FAERS Safety Report 4981483-5 (Version None)
Quarter: 2006Q2

REPORT INFORMATION
  Report Type: 
  Country: None (occurrence: None)
  Receive Date: 20060424
  Receipt Date: 20051005
  Transmission Date: 20061013
  Serious: Yes (Hospitalization, Other)
  Sender: FDA-Public Use
  Company Number: US-MERCK-0510USA03886

PATIENT
  Age: 77 Year
  Sex: Female
  Weight: 50 kg

DRUGS (24)
  1. VIOXX [Suspect]
     Indication: ARTHRITIS
     Route: 048
     Dates: start: 20020517, end: 20041001
  2. ALPRAZOLAM [Concomitant]
     Route: 065
  3. FOSAMAX [Concomitant]
     Route: 065
  4. PAXIL [Concomitant]
     Route: 065
  5. FLUOXETINE [Concomitant]
     Indication: DEPRESSION
     Route: 065
  6. FUROSEMIDE [Concomitant]
     Indication: OEDEMA
     Route: 065
  7. PROTONIX [Concomitant]
     Indication: GASTROOESOPHAGEAL REFLUX DISEASE
     Route: 065
  8. EVISTA [Concomitant]
     Indication: MENOPAUSE
     Route: 065
  9. NEXIUM [Concomitant]
     Indication: GASTROOESOPHAGEAL REFLUX DISEASE
     Route: 065
  10. LEVAQUIN [Concomitant]
     Route: 065
  11. ISOSORBIDE DINITRATE [Concomitant]
     Indication: ARRHYTHMIA
     Route: 065
  12. PRAVACHOL [Concomitant]
     Indication: BLOOD CHOLESTEROL INCREASED
     Route: 065
  13. ACTONEL [Concomitant]
     Route: 065
  14. CIPRO [Concomitant]
     Route: 065
  15. POTASSIUM CHLORIDE [Concomitant]
     Route: 065
  16. ASPIRIN [Concomitant]
     Route: 065
  17. AMBIEN [Concomitant]
     Indication: SLEEP DISORDER
     Route: 065
  18. NITROQUICK [Concomitant]
     Route: 065
  19. RISPERDAL [Concomitant]
     Indication: AMNESIA
     Route: 065
  20. PREVACID [Concomitant]
     Route: 065
  21. CYCLOBENZAPRINE HYDROCHLORIDE [Concomitant]
     Route: 065
  22. AMITRIPTYLINE HYDROCHLORIDE [Concomitant]
     Route: 065
  23. MIRTAZAPINE [Concomitant]
     Route: 065
  24. ACETAMINOPHEN AND PROPOXYPHENE NAPSYLATE [Concomitant]
     Route: 065

REACTIONS (14)
  - CEREBROVASCULAR ACCIDENT [None]
  - CHRONIC OBSTRUCTIVE PULMONARY DISEASE [None]
  - CONFUSIONAL STATE [None]
  - DEEP VEIN THROMBOSIS [None]
  - DELIRIUM [None]
  - DEMENTIA [None]
  - FALL [None]
  - HAEMORRHAGIC CEREBRAL INFARCTION [None]
  - HYPONATRAEMIA [None]
  - HYPOTENSION [None]
  - INTRACRANIAL ANEURYSM [None]
  - PULMONARY EMBOLISM [None]
  - RENAL FAILURE [None]
  - URINARY TRACT INFECTION [None]
